FAERS Safety Report 7052525-0 (Version None)
Quarter: 2010Q4

REPORT INFORMATION
  Report Type: 
  Country: None (occurrence: None)
  Receive Date: 20101014
  Receipt Date: 20100930
  Transmission Date: 20110411
  Serious: Yes (Other)
  Sender: FDA-Public Use
  Company Number: 019782

PATIENT
  Sex: Female
  Weight: 4 kg

DRUGS (7)
  1. KEPPRA [Suspect]
     Indication: EPILEPSY
     Dosage: 1000 MG BID TRANSPLACENTAL
     Route: 064
     Dates: end: 20100704
  2. ZONEGRAN [Concomitant]
  3. TEGRETOL [Concomitant]
  4. STRATTERA [Concomitant]
  5. FOLIC ACID [Concomitant]
  6. ROSCAL [Concomitant]
  7. ZOFRAN [Concomitant]

REACTIONS (2)
  - MATERNAL DRUGS AFFECTING FOETUS [None]
  - PREMATURE BABY [None]
